FAERS Safety Report 16150117 (Version 1)
Quarter: 2019Q2

REPORT INFORMATION
  Report Type: Spontaneous
  Country: US (occurrence: US)
  Receive Date: 20190403
  Receipt Date: 20190403
  Transmission Date: 20190711
  Serious: No
  Sender: FDA-Public Use
  Company Number: US-MYLANLABS-2019M1024017

PATIENT
  Sex: Male
  Weight: 71 kg

DRUGS (4)
  1. AMNESTEEM [Suspect]
     Active Substance: ISOTRETINOIN
     Indication: ACNE
     Dosage: 40 MILLIGRAM, QD, IN THE EVENING WITH FOOD
     Route: 048
  2. AMNESTEEM [Suspect]
     Active Substance: ISOTRETINOIN
     Dosage: 40 MILLIGRAM, QD
  3. AMNESTEEM [Suspect]
     Active Substance: ISOTRETINOIN
     Indication: SCAR
     Dosage: 40 MILLIGRAM, BID, (40 MG IN MORNING AND IN EVENING)
  4. AMNESTEEM [Suspect]
     Active Substance: ISOTRETINOIN
     Dosage: UNK
     Dates: start: 20190308

REACTIONS (10)
  - Back pain [Recovering/Resolving]
  - Oropharyngeal pain [Recovering/Resolving]
  - Skin exfoliation [Recovering/Resolving]
  - Chromaturia [Recovering/Resolving]
  - Hypersensitivity [Not Recovered/Not Resolved]
  - Dehydration [Recovering/Resolving]
  - Chapped lips [Recovering/Resolving]
  - Rhinorrhoea [Not Recovered/Not Resolved]
  - Eczema [Recovering/Resolving]
  - Nasopharyngitis [Not Recovered/Not Resolved]
